FAERS Safety Report 18317955 (Version 1)
Quarter: 2020Q3

REPORT INFORMATION
  Report Type: Spontaneous
  Country: US (occurrence: US)
  Receive Date: 20200925
  Receipt Date: 20200925
  Transmission Date: 20201103
  Serious: No
  Sender: FDA-Public Use
  Company Number: None

PATIENT
  Age: 98 Year
  Sex: Female
  Weight: 72.9 kg

DRUGS (9)
  1. ELIQUIS [Concomitant]
     Active Substance: APIXABAN
  2. FUROMESIDE [Concomitant]
  3. DONEPEZIL. [Concomitant]
     Active Substance: DONEPEZIL
  4. OSARIAN POTASSIUM [Concomitant]
  5. PRESERVISION VITAMINS [Concomitant]
  6. FUROSEMIDE. [Suspect]
     Active Substance: FUROSEMIDE
     Indication: HYPERTENSION
  7. MYRIBETRIQ [Concomitant]
  8. FUROSEMIDE. [Suspect]
     Active Substance: FUROSEMIDE
     Indication: CARDIAC FAILURE
  9. CARVEDLOL [Concomitant]
     Active Substance: CARVEDILOL

REACTIONS (1)
  - Rash pruritic [None]

NARRATIVE: CASE EVENT DATE: 20200918
